FAERS Safety Report 26083811 (Version 1)
Quarter: 2025Q4

REPORT INFORMATION
  Report Type: Spontaneous
  Country: US (occurrence: None)
  Receive Date: 20251124
  Receipt Date: 20251124
  Transmission Date: 20260118
  Serious: Yes (Other)
  Sender: FDA-CTU
  Company Number: None

PATIENT
  Sex: Male

DRUGS (2)
  1. VYNDAMAX [Suspect]
     Active Substance: TAFAMIDIS
     Dosage: FREQUENCY : DAILY;?
     Route: 048
     Dates: start: 20250122
  2. CLARITIN [Concomitant]
     Active Substance: LORATADINE

REACTIONS (4)
  - Skin ulcer [None]
  - Poor peripheral circulation [None]
  - Decreased appetite [None]
  - Weight decreased [None]
